FAERS Safety Report 9722357 (Version 5)
Quarter: 2014Q2

REPORT INFORMATION
  Report Type: Spontaneous
  Country: JP (occurrence: JP)
  Receive Date: 20131202
  Receipt Date: 20140411
  Transmission Date: 20141212
  Serious: Yes (Hospitalization, Other)
  Sender: FDA-Public Use
  Company Number: JP-JNJFOC-20131115406

PATIENT
  Age: 47 Year
  Sex: Female
  Weight: 35 kg

DRUGS (11)
  1. REMICADE [Suspect]
     Indication: COLITIS ULCERATIVE
     Dosage: THE PATIENT AHD RECEIVED 10 DOSES OF INFLIXIMAB
     Route: 042
     Dates: start: 20130418, end: 20130418
  2. REMICADE [Suspect]
     Indication: COLITIS ULCERATIVE
     Dosage: THE PATIENT AHD RECEIVED 10 DOSES OF INFLIXIMAB
     Route: 042
     Dates: start: 201202
  3. ASACOL [Suspect]
     Indication: COLITIS ULCERATIVE
     Route: 048
     Dates: start: 200909
  4. PENTASA [Suspect]
     Indication: COLITIS ULCERATIVE
     Dosage: 3000 DF
     Route: 048
  5. PREDNISOLONE [Concomitant]
     Indication: COLITIS ULCERATIVE
     Route: 048
     Dates: start: 200909
  6. MIYA BM [Concomitant]
     Indication: COLITIS ULCERATIVE
     Route: 048
  7. MAGLAX [Concomitant]
     Indication: COLITIS ULCERATIVE
     Route: 048
  8. PARIET [Concomitant]
     Indication: COLITIS ULCERATIVE
     Route: 048
  9. LENDORMIN D [Concomitant]
     Indication: COLITIS ULCERATIVE
     Route: 048
  10. CALONAL [Concomitant]
     Indication: COLITIS ULCERATIVE
     Route: 048
  11. REBAMIPIDE [Concomitant]
     Indication: COLITIS ULCERATIVE
     Route: 048

REACTIONS (2)
  - Systemic lupus erythematosus [Recovering/Resolving]
  - Pleural effusion [Unknown]
